FAERS Safety Report 8263140-5 (Version None)
Quarter: 2012Q1

REPORT INFORMATION
  Report Type: 
  Country: None (occurrence: None)
  Receive Date: 20120327
  Receipt Date: 20090216
  Transmission Date: 20120608
  Serious: Yes (Other)
  Sender: FDA-Public Use
  Company Number: PHEH2008US09297

PATIENT
  Age: 81 Year
  Sex: Female
  Weight: 45.4 kg

DRUGS (8)
  1. ASPIRIN [Concomitant]
  2. LEVOTHYROXINE SODIUM [Concomitant]
  3. GLEEVEC [Suspect]
     Indication: GASTROINTESTINAL STROMAL TUMOUR
     Dosage: 400 MG, OD, ORAL
     Route: 048
     Dates: start: 20080505, end: 20081022
  4. NAPROXEN (ALEVE) [Concomitant]
  5. LEVOTHYROXINE SODIUM [Concomitant]
  6. OSCAL (CALCIUM CARBONATE) [Concomitant]
  7. GLUCOSAMINE [Concomitant]
  8. CENTRUM SILVER (ASCORBIC ACID, CALCIUM, MINERALS NOS, RETINOL, TOCOPHE [Concomitant]

REACTIONS (11)
  - OEDEMA PERIPHERAL [None]
  - HAEMOGLOBIN DECREASED [None]
  - RASH [None]
  - NAUSEA [None]
  - ASPARTATE AMINOTRANSFERASE INCREASED [None]
  - BLOOD ALBUMIN DECREASED [None]
  - LIVER FUNCTION TEST ABNORMAL [None]
  - PERIORBITAL OEDEMA [None]
  - PRURITUS [None]
  - ALANINE AMINOTRANSFERASE INCREASED [None]
  - SWELLING FACE [None]
